FAERS Safety Report 17875452 (Version 1)
Quarter: 2020Q2

REPORT INFORMATION
  Report Type: Spontaneous
  Country: US (occurrence: US)
  Receive Date: 20200609
  Receipt Date: 20200609
  Transmission Date: 20200714
  Serious: Yes (Hospitalization)
  Sender: FDA-Public Use
  Company Number: None

PATIENT
  Age: 54 Year
  Sex: Female

DRUGS (19)
  1. LEXAPRO [Suspect]
     Active Substance: ESCITALOPRAM OXALATE
  2. TRAZODONE [Suspect]
     Active Substance: TRAZODONE HYDROCHLORIDE
  3. VICTOZA [Suspect]
     Active Substance: LIRAGLUTIDE
  4. CLONAZEPAM. [Suspect]
     Active Substance: CLONAZEPAM
  5. FEXOFEN/PSE [Concomitant]
  6. MINOCYCLINE [Suspect]
     Active Substance: MINOCYCLINE HYDROCHLORIDE
  7. ATENOLOL. [Suspect]
     Active Substance: ATENOLOL
  8. NEO/POLY/DEX [Suspect]
     Active Substance: DEXAMETHASONE\NEOMYCIN\POLYMYXIN B SULFATE
  9. AMOXICILLIN. [Suspect]
     Active Substance: AMOXICILLIN
  10. FLUOXETINE [Suspect]
     Active Substance: FLUOXETINE HYDROCHLORIDE
  11. LANTUS SOLOS [Concomitant]
  12. LISINOPRIL AND HYDROCHLOROTHIAZIDE [Suspect]
     Active Substance: HYDROCHLOROTHIAZIDE\LISINOPRIL
  13. NAPROXEN. [Suspect]
     Active Substance: NAPROXEN
  14. ACTEMRA [Suspect]
     Active Substance: TOCILIZUMAB
     Indication: RHEUMATOID ARTHRITIS
     Dosage: ?          OTHER DOSE:1 SYR;OTHER FREQUENCY:Q7D;?
     Route: 058
     Dates: start: 20171121
  15. LEFLUNOMIDE. [Suspect]
     Active Substance: LEFLUNOMIDE
  16. METFORMIN [Suspect]
     Active Substance: METFORMIN HYDROCHLORIDE
  17. NARCAN [Suspect]
     Active Substance: NALOXONE HYDROCHLORIDE
  18. PREDNISONE. [Suspect]
     Active Substance: PREDNISONE
  19. TRAMADOL HCL [Suspect]
     Active Substance: TRAMADOL HYDROCHLORIDE

REACTIONS (3)
  - Hospitalisation [None]
  - Infection [None]
  - Therapy interrupted [None]

NARRATIVE: CASE EVENT DATE: 20200603
